FAERS Safety Report 6104848-7 (Version None)
Quarter: 2009Q1

REPORT INFORMATION
  Report Type: 
  Country: None (occurrence: None)
  Receive Date: 20090306
  Receipt Date: 20090303
  Transmission Date: 20090719
  Serious: Yes (Death)
  Sender: FDA-Public Use
  Company Number: US-BAYER-200913702NA

PATIENT
  Age: 69 Year
  Sex: Male
  Weight: 68 kg

DRUGS (2)
  1. SORAFENIB [Suspect]
     Indication: OESOPHAGEAL CARCINOMA
     Dosage: TOTAL DAILY DOSE: 800 MG  UNIT DOSE: 200 MG
     Route: 048
     Dates: start: 20090127, end: 20090211
  2. RAPAMYCIN [Suspect]
     Indication: OESOPHAGEAL CARCINOMA
     Dosage: TOTAL DAILY DOSE: 2 MG
     Route: 048
     Dates: start: 20090127, end: 20090215

REACTIONS (3)
  - DEATH [None]
  - DYSPNOEA [None]
  - RASH [None]
